FAERS Safety Report 9049630 (Version 1)
Quarter: 2013Q1

REPORT INFORMATION
  Report Type: Spontaneous
  Country: US (occurrence: US)
  Receive Date: 20130205
  Receipt Date: 20130205
  Transmission Date: 20140127
  Serious: No
  Sender: FDA-Public Use
  Company Number: US-ASTRAZENECA-2013SE03589

PATIENT
  Age: 64 Year
  Sex: Female
  Weight: 85.3 kg

DRUGS (8)
  1. SYMBICORT PMDI [Suspect]
     Indication: ASTHMA
     Dosage: 160 MCG, TWO PUFFS, TWO TIMES A DAY
     Route: 055
     Dates: start: 2005
  2. PRILOSEC OTC [Suspect]
     Indication: GASTROOESOPHAGEAL REFLUX DISEASE
     Route: 048
     Dates: start: 2008
  3. CRESTOR [Suspect]
     Indication: BLOOD CHOLESTEROL INCREASED
     Route: 048
     Dates: start: 2008
  4. CYMBALTA [Concomitant]
     Indication: DEPRESSION
  5. VALACYCLOVIR [Concomitant]
     Indication: HERPES VIRUS INFECTION
  6. ABILIFY [Concomitant]
     Indication: DEPRESSION
  7. SINGULAIR [Concomitant]
     Indication: ASTHMA
  8. AMPICILLIN [Concomitant]
     Indication: ACNE CYSTIC
     Route: 048
     Dates: start: 2010

REACTIONS (8)
  - Oral candidiasis [Not Recovered/Not Resolved]
  - Bronchopneumonia [Recovering/Resolving]
  - Hypothyroidism [Unknown]
  - Gastrooesophageal reflux disease [Unknown]
  - Hot flush [Unknown]
  - Eating disorder [Unknown]
  - Glossodynia [Unknown]
  - Dysphonia [Unknown]
